FAERS Safety Report 25712236 (Version 3)
Quarter: 2025Q4

REPORT INFORMATION
  Report Type: Spontaneous
  Country: US (occurrence: US)
  Receive Date: 20250821
  Receipt Date: 20251001
  Transmission Date: 20260117
  Serious: No
  Sender: AXSOME THERAPEUTICS
  Company Number: US-AXS-AXS202508-001462

PATIENT
  Age: 41 Year
  Sex: Female
  Weight: 58.96 kg

DRUGS (2)
  1. AUVELITY [Suspect]
     Active Substance: BUPROPION HYDROCHLORIDE\DEXTROMETHORPHAN HYDROBROMIDE
     Indication: Major depression
     Dosage: 45/105 MG
     Route: 048
     Dates: start: 20250601
  2. AUVELITY [Suspect]
     Active Substance: BUPROPION HYDROCHLORIDE\DEXTROMETHORPHAN HYDROBROMIDE
     Route: 048

REACTIONS (3)
  - Feeling abnormal [Recovering/Resolving]
  - Negative thoughts [Recovering/Resolving]
  - Loss of therapeutic response [Unknown]
